FAERS Safety Report 6976104-6 (Version None)
Quarter: 2010Q3

REPORT INFORMATION
  Report Type: 
  Country: None (occurrence: None)
  Receive Date: 20100910
  Receipt Date: 20100831
  Transmission Date: 20110219
  Serious: Yes (Other)
  Sender: FDA-Public Use
  Company Number: JP-PFIZER INC-2010098442

PATIENT
  Age: 65 Year
  Sex: Female
  Weight: 62 kg

DRUGS (6)
  1. CELECOX [Suspect]
     Indication: OSTEOARTHRITIS
     Dosage: 100 MG, 2X/DAY
     Route: 048
     Dates: start: 20100531, end: 20100719
  2. CELECOX [Suspect]
     Dosage: 100 MG, 2X/DAY
     Route: 048
     Dates: start: 20100721, end: 20100721
  3. GASLON [Concomitant]
     Indication: GASTRITIS
     Dosage: UNK
     Dates: start: 20100531, end: 20100721
  4. BENIDIPINE HYDROCHLORIDE [Concomitant]
     Indication: HYPERTENSION
     Dosage: UNK
  5. SIMVASTATIN [Concomitant]
     Indication: HYPERLIPIDAEMIA
     Dosage: UNK
  6. HYALURONATE SODIUM [Concomitant]
     Dosage: UNK
     Dates: start: 20100520

REACTIONS (3)
  - DRUG ERUPTION [None]
  - DYSPNOEA [None]
  - OEDEMA MOUTH [None]
